FAERS Safety Report 15696058 (Version 1)
Quarter: 2018Q4

REPORT INFORMATION
  Report Type: Spontaneous
  Country: US (occurrence: US)
  Receive Date: 20181206
  Receipt Date: 20181206
  Transmission Date: 20190205
  Serious: No
  Sender: FDA-Public Use
  Company Number: US-PFIZER INC-2017539475

PATIENT
  Age: 54 Year
  Sex: Male

DRUGS (1)
  1. SOMAVERT [Suspect]
     Active Substance: PEGVISOMANT
     Dosage: 10 MG, DAILY
     Dates: start: 20160213

REACTIONS (3)
  - Blood urea nitrogen/creatinine ratio increased [Unknown]
  - Glycosylated haemoglobin increased [Unknown]
  - Blood creatinine decreased [Unknown]
